FAERS Safety Report 19200985 (Version 1)
Quarter: 2021Q2

REPORT INFORMATION
  Report Type: Other
  Country: CA (occurrence: CA)
  Receive Date: 20210430
  Receipt Date: 20210430
  Transmission Date: 20210717
  Serious: Yes (Life-Threatening, Hospitalization, Other)
  Sender: FDA-Public Use
  Company Number: CA-APOTEX-2021AP010334

PATIENT
  Age: 35 Year
  Sex: Male
  Weight: 104.31 kg

DRUGS (1)
  1. APO?LEVOFLOXACIN [Suspect]
     Active Substance: LEVOFLOXACIN
     Indication: PROSTATITIS
     Dosage: UNK
     Route: 065

REACTIONS (7)
  - Ventricular extrasystoles [Not Recovered/Not Resolved]
  - Extrasystoles [Not Recovered/Not Resolved]
  - Dizziness [Not Recovered/Not Resolved]
  - Dyspnoea [Not Recovered/Not Resolved]
  - Arrhythmia [Not Recovered/Not Resolved]
  - Motor dysfunction [Not Recovered/Not Resolved]
  - Heart rate increased [Not Recovered/Not Resolved]
